FAERS Safety Report 11463955 (Version 1)
Quarter: 2015Q3

REPORT INFORMATION
  Report Type: Spontaneous
  Country: US (occurrence: US)
  Receive Date: 20150831
  Receipt Date: 20150831
  Transmission Date: 20151125
  Serious: No
  Sender: FDA-Public Use
  Company Number: US-ELI_LILLY_AND_COMPANY-US200902000469

PATIENT
  Sex: Male

DRUGS (10)
  1. COZAAR [Concomitant]
     Active Substance: LOSARTAN POTASSIUM
  2. AMLODIPINE [Concomitant]
     Active Substance: AMLODIPINE BESYLATE
     Dosage: 5 MG, QD
  3. CYMBALTA [Suspect]
     Active Substance: DULOXETINE HYDROCHLORIDE
     Dosage: 60 MG, DAILY (1/D)
     Dates: end: 2009
  4. CONCERTA [Concomitant]
     Active Substance: METHYLPHENIDATE HYDROCHLORIDE
  5. LEXAPRO [Concomitant]
     Active Substance: ESCITALOPRAM OXALATE
  6. CYMBALTA [Suspect]
     Active Substance: DULOXETINE HYDROCHLORIDE
     Indication: DEPRESSION
     Dosage: 60 MG, QD
     Dates: start: 2006
  7. CYMBALTA [Suspect]
     Active Substance: DULOXETINE HYDROCHLORIDE
     Dosage: 120 MG, DAILY (1/D)
  8. LORAZEPAM. [Concomitant]
     Active Substance: LORAZEPAM
  9. ZOCOR [Concomitant]
     Active Substance: SIMVASTATIN
  10. HYDROCHLOROTHIAZIDE. [Concomitant]
     Active Substance: HYDROCHLOROTHIAZIDE
     Dosage: 12.5 MG, QD

REACTIONS (17)
  - Pain [Unknown]
  - Arthralgia [Not Recovered/Not Resolved]
  - Hypoaesthesia [Unknown]
  - Drug ineffective [Recovered/Resolved]
  - Hyperhidrosis [Unknown]
  - Drug withdrawal syndrome [Recovered/Resolved]
  - Akathisia [Unknown]
  - Hypertension [Unknown]
  - Back pain [Unknown]
  - Feeling jittery [Unknown]
  - Insomnia [Unknown]
  - Osteoarthritis [Unknown]
  - Meniscus injury [Unknown]
  - Headache [Recovered/Resolved]
  - Influenza like illness [Unknown]
  - Irritability [Unknown]
  - Musculoskeletal pain [Unknown]
